FAERS Safety Report 13884152 (Version 1)
Quarter: 2017Q3

REPORT INFORMATION
  Report Type: Spontaneous
  Country: US (occurrence: US)
  Receive Date: 20170821
  Receipt Date: 20170821
  Transmission Date: 20171127
  Serious: No
  Sender: FDA-Public Use
  Company Number: US-ASTRAZENECA-2017SE84103

PATIENT
  Sex: Female

DRUGS (3)
  1. DIGOXIN. [Suspect]
     Active Substance: DIGOXIN
     Indication: BLOOD PRESSURE INCREASED
     Dosage: UNK
     Route: 065
  2. METOPROLOL TARTRATE. [Suspect]
     Active Substance: METOPROLOL TARTRATE
     Indication: BLOOD PRESSURE INCREASED
     Dosage: UNK
     Route: 065
  3. NEXIUM 24HR [Suspect]
     Active Substance: ESOMEPRAZOLE MAGNESIUM
     Indication: ABDOMINAL DISCOMFORT
     Dosage: 20.0MG UNKNOWN
     Route: 048

REACTIONS (3)
  - Head discomfort [Unknown]
  - Intentional product misuse [Unknown]
  - Dizziness [Unknown]
